FAERS Safety Report 18958332 (Version 1)
Quarter: 2021Q1

REPORT INFORMATION
  Report Type: Spontaneous
  Country: US (occurrence: US)
  Receive Date: 20210302
  Receipt Date: 20210302
  Transmission Date: 20210420
  Serious: No
  Sender: FDA-Public Use
  Company Number: US-GLAXOSMITHKLINE-US2021AMR055646

PATIENT
  Sex: Male

DRUGS (1)
  1. ALBUTEROL SULFATE. [Suspect]
     Active Substance: ALBUTEROL SULFATE
     Indication: PRODUCT USED FOR UNKNOWN INDICATION
     Dosage: UNK,90 MCG, 18G/200 METERED

REACTIONS (6)
  - Candida infection [Unknown]
  - Tinnitus [Unknown]
  - Blood pressure increased [Unknown]
  - Incorrect dose administered by device [Unknown]
  - Device use error [Unknown]
  - Ill-defined disorder [Unknown]
